FAERS Safety Report 8818424 (Version 1)
Quarter: 2012Q4

REPORT INFORMATION
  Report Type: 
  Country: US (occurrence: US)
  Receive Date: 20121001
  Receipt Date: 20121001
  Transmission Date: 20130627
  Serious: Yes (Other)
  Sender: FDA-Public Use
  Company Number: US-ROCHE-1138991

PATIENT

DRUGS (5)
  1. MABTHERA [Suspect]
     Indication: MANTLE CELL LYMPHOMA
     Route: 042
  2. CYCLOPHOSPHAMIDE [Suspect]
     Indication: MANTLE CELL LYMPHOMA
     Route: 042
  3. DOXORUBICIN/DOXORUBICIN HYDROCHLORIDE [Suspect]
     Indication: MANTLE CELL LYMPHOMA
     Route: 042
  4. VINCRISTINE [Suspect]
     Indication: MANTLE CELL LYMPHOMA
     Dosage: maximum dose 2 mg
     Route: 042
  5. PREDNISONE [Suspect]
     Indication: MANTLE CELL LYMPHOMA
     Dosage: for 5 days
     Route: 048

REACTIONS (16)
  - Neutropenia [Unknown]
  - Leukopenia [Unknown]
  - Thrombocytopenia [Unknown]
  - Febrile neutropenia [Unknown]
  - Infection [Unknown]
  - Anaemia [Unknown]
  - Diarrhoea [Unknown]
  - Metabolic disorder [Unknown]
  - Hyperuricaemia [Unknown]
  - Peripheral sensory neuropathy [Unknown]
  - Syncope [Unknown]
  - Stomatitis [Unknown]
  - Dyspnoea [Unknown]
  - Hypoxia [Unknown]
  - Hyperglycaemia [Unknown]
  - Myelodysplastic syndrome [Unknown]
